FAERS Safety Report 8212332-X (Version None)
Quarter: 2012Q1

REPORT INFORMATION
  Report Type: 
  Country: None (occurrence: None)
  Receive Date: 20120315
  Receipt Date: 20120306
  Transmission Date: 20120608
  Serious: Yes (Other)
  Sender: FDA-Public Use
  Company Number: US-ROCHE-794369

PATIENT
  Sex: Female
  Weight: 65.83 kg

DRUGS (1)
  1. ACCUTANE [Suspect]
     Indication: PRODUCT USED FOR UNKNOWN INDICATION
     Route: 065
     Dates: start: 20000622, end: 20001106

REACTIONS (3)
  - COLITIS ULCERATIVE [None]
  - BIPOLAR DISORDER [None]
  - INFLAMMATORY BOWEL DISEASE [None]
